FAERS Safety Report 13367836 (Version 2)
Quarter: 2017Q2

REPORT INFORMATION
  Report Type: Spontaneous
  Country: TR (occurrence: TR)
  Receive Date: 20170324
  Receipt Date: 20170407
  Transmission Date: 20170830
  Serious: Yes (Death, Life-Threatening, Other)
  Sender: FDA-Public Use
  Company Number: TR-AMGEN-TURSP2017044623

PATIENT
  Age: 57 Year
  Sex: Male
  Weight: 58 kg

DRUGS (1)
  1. KYPROLIS [Suspect]
     Active Substance: CARFILZOMIB
     Indication: PLASMA CELL MYELOMA
     Dosage: UNK (20MG/M2 IN C1, D1-2, 27 MG/M2 D8-9 AND D15-18, OTHER CYCLES 27 MG/M2 AND 1 CYCLE WAS OF 28 DAYS
     Route: 042
     Dates: start: 20170109

REACTIONS (7)
  - Liver function test abnormal [Unknown]
  - Blood bilirubin abnormal [Unknown]
  - Multiple organ dysfunction syndrome [Fatal]
  - Respiratory arrest [Fatal]
  - Abdominal pain upper [Fatal]
  - Herpes zoster disseminated [Fatal]
  - Back pain [Unknown]

NARRATIVE: CASE EVENT DATE: 2017
